FAERS Safety Report 13296879 (Version 2)
Quarter: 2017Q2

REPORT INFORMATION
  Report Type: Spontaneous
  Country: US (occurrence: US)
  Receive Date: 20170306
  Receipt Date: 20170515
  Transmission Date: 20170830
  Serious: Yes (Other)
  Sender: FDA-Public Use
  Company Number: US-TEVA-736707ACC

PATIENT
  Sex: Female

DRUGS (1)
  1. TAMOXIFEN [Suspect]
     Active Substance: TAMOXIFEN
     Dosage: ONLY TOOK 2 TABLETS

REACTIONS (6)
  - Feeling abnormal [Unknown]
  - Malaise [Recovered/Resolved]
  - Weight increased [Unknown]
  - Dyspepsia [Not Recovered/Not Resolved]
  - Adverse event [Unknown]
  - Breast cancer [Unknown]
